FAERS Safety Report 9110844 (Version 1)
Quarter: 2013Q1

REPORT INFORMATION
  Report Type: Spontaneous
  Country: US (occurrence: US)
  Receive Date: 20130219
  Receipt Date: 20130219
  Transmission Date: 20140127
  Serious: No
  Sender: FDA-Public Use
  Company Number: US-BRISTOL-MYERS SQUIBB COMPANY-17238213

PATIENT
  Age: 38 Year
  Sex: Female
  Weight: 53.06 kg

DRUGS (6)
  1. ABATACEPT SUBQ INJECTION 125MG/ML [Suspect]
     Route: 058
  2. SOLU-MEDROL [Concomitant]
  3. BENADRYL [Concomitant]
  4. CLONAZEPAM [Concomitant]
  5. DESIPRAMINE [Concomitant]
  6. FOLIC ACID [Concomitant]

REACTIONS (6)
  - Fatigue [Unknown]
  - Pyrexia [Unknown]
  - Renal pain [Unknown]
  - Tachycardia [Unknown]
  - Hypotension [Unknown]
  - Hypertension [Unknown]
